FAERS Safety Report 5597900-6 (Version None)
Quarter: 2007Q4

REPORT INFORMATION
  Report Type: 
  Country: None (occurrence: None)
  Receive Date: 20071221
  Receipt Date: 20070822
  Transmission Date: 20080405
  Serious: No
  Sender: FDA-Public Use
  Company Number: US200708004850

PATIENT
  Age: 83 Year
  Sex: Male

DRUGS (1)
  1. HUMALOG PEN [Suspect]
     Dosage: UNK
     Dates: start: 19970101

REACTIONS (1)
  - BLOOD GLUCOSE DECREASED [None]
